FAERS Safety Report 18957346 (Version 1)
Quarter: 2021Q1

REPORT INFORMATION
  Report Type: Spontaneous
  Country: GB (occurrence: GB)
  Receive Date: 20210302
  Receipt Date: 20210302
  Transmission Date: 20210420
  Serious: Yes (Other)
  Sender: FDA-Public Use
  Company Number: GB-EMCURE PHARMACEUTICALS LTD-2021-EPL-000596

PATIENT
  Age: 34 Year
  Sex: Female
  Weight: 54.88 kg

DRUGS (8)
  1. CLOTRIMAZOL [Concomitant]
     Active Substance: CLOTRIMAZOLE
  2. CANNABIDIOL [Concomitant]
     Active Substance: CANNABIDIOL
     Dosage: OIL
  3. INDOMETACIN [Suspect]
     Active Substance: INDOMETHACIN
     Indication: HEADACHE
     Dosage: 75 MILLIGRAM, TID
     Route: 048
     Dates: start: 20201223, end: 20201230
  4. CANESTEN [Concomitant]
     Active Substance: CLOTRIMAZOLE
  5. INDOMETACIN [Suspect]
     Active Substance: INDOMETHACIN
     Dosage: 50 MILLIGRAM, TID
     Route: 048
     Dates: start: 20201230, end: 20210111
  6. EUMOVATE [Concomitant]
     Active Substance: CLOBETASONE BUTYRATE
  7. ACICLOVIR [Concomitant]
     Active Substance: ACYCLOVIR
  8. DERMOL [Concomitant]
     Active Substance: BENZALKONIUM CHLORIDE\CHLORHEXIDINE HYDROCHLORIDE\ISOPROPYL MYRISTATE\PARAFFIN

REACTIONS (3)
  - Headache [Recovered/Resolved]
  - Epistaxis [Recovered/Resolved]
  - Failure to suspend medication [Unknown]

NARRATIVE: CASE EVENT DATE: 20201230
